FAERS Safety Report 7342850-8 (Version None)
Quarter: 2011Q1

REPORT INFORMATION
  Report Type: 
  Country: None (occurrence: None)
  Receive Date: 20110310
  Receipt Date: 20110224
  Transmission Date: 20110831
  Serious: Yes (Hospitalization, Other)
  Sender: FDA-Public Use
  Company Number: TW-CELGENEUS-153-50794-11023097

PATIENT
  Sex: Male
  Weight: 67.5 kg

DRUGS (17)
  1. SODIUM CHLORIDE [Concomitant]
     Dosage: 250CC
     Route: 050
     Dates: start: 20110118, end: 20110118
  2. ALLERMIN [Concomitant]
     Dosage: 1
     Dates: start: 20110118, end: 20110119
  3. PROMERAN [Concomitant]
     Dosage: 1 TABLET
     Route: 048
     Dates: start: 20110124, end: 20110125
  4. SODIUM CHLORIDE [Concomitant]
     Dosage: 500CC
     Dates: start: 20110120, end: 20110120
  5. SODIUM CHLORIDE [Concomitant]
     Dosage: 500CC
     Dates: start: 20110118, end: 20110125
  6. METOCLOPRAMIDE HCL [Concomitant]
     Dosage: 10 MILLIGRAM
     Route: 050
     Dates: start: 20110118, end: 20110124
  7. PARAMOL [Concomitant]
     Dosage: 500 MILLIGRAM
     Route: 048
     Dates: start: 20110118, end: 20110120
  8. SODIUM CHLORIDE [Concomitant]
     Dosage: 500CC
     Dates: start: 20110119, end: 20110119
  9. ALLERMIN [Concomitant]
     Dosage: 1
     Route: 050
     Dates: start: 20110118, end: 20110118
  10. ALLERMIN [Concomitant]
     Dosage: 1
     Dates: start: 20110119, end: 20110119
  11. SOLU-CORTEF [Concomitant]
     Dosage: 100 MILLIGRAM
     Route: 048
     Dates: start: 20110118, end: 20110119
  12. SODIUM CHLORIDE [Concomitant]
     Dosage: 250CC
     Dates: start: 20110118, end: 20110119
  13. ALLERMIN [Concomitant]
     Dosage: 1
     Dates: start: 20110120, end: 20110120
  14. VIDAZA [Suspect]
     Dosage: 75 MILLIGRAM/SQ. METER
     Route: 065
  15. PROMERAN [Concomitant]
     Dosage: 1 TABLET
     Route: 048
     Dates: start: 20110124, end: 20110129
  16. DEXAMETHASONE [Concomitant]
     Dosage: 2.5 MILLIGRAM
     Route: 050
     Dates: start: 20110118, end: 20110118
  17. DEXAMETHASONE [Concomitant]
     Dosage: 2.5 MILLIGRAM
     Dates: start: 20110120, end: 20110120

REACTIONS (4)
  - THROMBOCYTOPENIA [None]
  - PLEURAL EFFUSION [None]
  - ANAEMIA [None]
  - PYREXIA [None]
